FAERS Safety Report 5443430-1 (Version None)
Quarter: 2007Q3

REPORT INFORMATION
  Report Type: 
  Country: None (occurrence: None)
  Receive Date: 20070905
  Receipt Date: 20070831
  Transmission Date: 20080115
  Serious: Yes (Other)
  Sender: FDA-Public Use
  Company Number: B0485305A

PATIENT
  Age: 58 Year
  Sex: Male

DRUGS (3)
  1. ARIXTRA [Suspect]
     Indication: THROMBOSIS PROPHYLAXIS
     Dosage: 2.5MG PER DAY
     Route: 058
     Dates: start: 20070824, end: 20070827
  2. AMLODIPINE [Concomitant]
     Route: 048
  3. URSO 250 [Concomitant]
     Route: 048

REACTIONS (1)
  - HAEMATEMESIS [None]
